FAERS Safety Report 8187336-6 (Version None)
Quarter: 2012Q1

REPORT INFORMATION
  Report Type: 
  Country: None (occurrence: None)
  Receive Date: 20120306
  Receipt Date: 20120305
  Transmission Date: 20120608
  Serious: Yes (Other)
  Sender: FDA-Public Use
  Company Number: US-FRI-1000027138

PATIENT
  Age: 59 Year
  Sex: Male

DRUGS (3)
  1. BYSTOLIC [Suspect]
     Indication: HYPERTENSION
     Dosage: 5 MG
     Dates: start: 20110101, end: 20110901
  2. ASPIRIN [Concomitant]
  3. BYSTOLIC [Suspect]
     Dosage: 10 MG
     Dates: start: 20110901, end: 20120105

REACTIONS (5)
  - ABDOMINAL DISCOMFORT [None]
  - DYSPNOEA [None]
  - JOINT INJURY [None]
  - JOINT SWELLING [None]
  - ARTHRALGIA [None]
